FAERS Safety Report 15387099 (Version 2)
Quarter: 2019Q2

REPORT INFORMATION
  Report Type: Spontaneous
  Country: US (occurrence: US)
  Receive Date: 20180914
  Receipt Date: 20190409
  Transmission Date: 20190711
  Serious: Yes (Other)
  Sender: FDA-Public Use
  Company Number: US-SA-2018SA003885

PATIENT
  Age: 61 Year
  Sex: Female
  Weight: 62.59 kg

DRUGS (10)
  1. PARAPLATIN [Concomitant]
     Active Substance: CARBOPLATIN
     Dosage: UNK
  2. LYRICA [Concomitant]
     Active Substance: PREGABALIN
     Dosage: UNK UNK, UNK
     Route: 065
  3. AMBIEN [Concomitant]
     Active Substance: ZOLPIDEM TARTRATE
     Dosage: UNK UNK, UNK
     Route: 065
  4. NEURONTIN [Concomitant]
     Active Substance: GABAPENTIN
     Dosage: UNK UNK, UNK
     Route: 065
     Dates: start: 20000101
  5. WELLBUTRIN [Concomitant]
     Active Substance: BUPROPION HYDROCHLORIDE
     Dosage: UNK UNK, UNK
     Route: 065
     Dates: start: 20000101
  6. VALSARTAN. [Concomitant]
     Active Substance: VALSARTAN
     Dosage: UNK UNK, UNK
     Route: 065
     Dates: start: 20000101
  7. DOCETAXEL. [Suspect]
     Active Substance: DOCETAXEL
     Indication: BREAST CANCER FEMALE
     Dosage: 1 MG, Q3W
     Route: 042
     Dates: start: 20140226, end: 20140226
  8. DOCETAXEL. [Suspect]
     Active Substance: DOCETAXEL
     Dosage: 1 MG, Q3W
     Route: 042
     Dates: start: 20140611, end: 20140611
  9. HERCEPTIN [Concomitant]
     Active Substance: TRASTUZUMAB
     Dosage: UNK
  10. RESTORIL [CHLORMEZANONE] [Concomitant]
     Active Substance: CHLORMEZANONE
     Dosage: UNK UNK, UNK
     Route: 065
     Dates: start: 20000101

REACTIONS (6)
  - Pain [Unknown]
  - Psychological trauma [Unknown]
  - Impaired quality of life [Unknown]
  - Alopecia [Recovering/Resolving]
  - Emotional distress [Unknown]
  - Anxiety [Unknown]

NARRATIVE: CASE EVENT DATE: 20140410
